FAERS Safety Report 7402815-4 (Version None)
Quarter: 2011Q2

REPORT INFORMATION
  Report Type: 
  Country: None (occurrence: None)
  Receive Date: 20110408
  Receipt Date: 20110328
  Transmission Date: 20111010
  Serious: Yes (Hospitalization)
  Sender: FDA-Public Use
  Company Number: PHHY2011DE26241

PATIENT

DRUGS (3)
  1. AT1-BLOCKER [Concomitant]
  2. RASILEZ [Suspect]
     Dates: end: 20100101
  3. DIURETICS [Concomitant]

REACTIONS (2)
  - HYPERKALAEMIA [None]
  - RENAL FAILURE ACUTE [None]
